FAERS Safety Report 14978355 (Version 1)
Quarter: 2018Q2

REPORT INFORMATION
  Report Type: Spontaneous
  Country: US (occurrence: US)
  Receive Date: 20180515
  Receipt Date: 20180515
  Transmission Date: 20180711
  Serious: Yes (Hospitalization)
  Sender: FDA-Public Use
  Company Number: None

PATIENT
  Age: 8 Year
  Sex: Female
  Weight: 10.41 kg

DRUGS (3)
  1. CARBOPLATIN. [Suspect]
     Active Substance: CARBOPLATIN
     Dates: end: 20180207
  2. THIOTEPA. [Suspect]
     Active Substance: THIOTEPA
     Dates: end: 20180207
  3. G-CSF (FILGRASTIM, AMGEN) [Suspect]
     Active Substance: FILGRASTIM
     Dates: end: 20180216

REACTIONS (10)
  - Diarrhoea [None]
  - Abdominal distension [None]
  - Neutropenia [None]
  - Abdominal tenderness [None]
  - Respiratory failure [None]
  - Pyrexia [None]
  - Pulmonary oedema [None]
  - Tachycardia [None]
  - Septic shock [None]
  - Neutropenic colitis [None]

NARRATIVE: CASE EVENT DATE: 20180214
